FAERS Safety Report 6873023-0 (Version None)
Quarter: 2010Q3

REPORT INFORMATION
  Report Type: 
  Country: None (occurrence: None)
  Receive Date: 20100723
  Receipt Date: 20081116
  Transmission Date: 20110219
  Serious: No
  Sender: FDA-Public Use
  Company Number: US-PFIZER INC-2008092893

PATIENT
  Sex: Female
  Weight: 65.9 kg

DRUGS (4)
  1. CHANTIX [Suspect]
     Indication: SMOKING CESSATION THERAPY
     Dates: start: 20060101
  2. ABILIFY [Concomitant]
  3. TRAZODONE [Concomitant]
  4. ATIVAN [Concomitant]
     Indication: ANXIETY

REACTIONS (8)
  - AGITATION [None]
  - DEPRESSION [None]
  - DRUG EFFECT DELAYED [None]
  - INSOMNIA [None]
  - IRRITABILITY [None]
  - MOVEMENT DISORDER [None]
  - NASOPHARYNGITIS [None]
  - SOMNOLENCE [None]
